FAERS Safety Report 22083504 (Version 1)
Quarter: 2023Q1

REPORT INFORMATION
  Report Type: Other
  Country: DE (occurrence: None)
  Receive Date: 20230310
  Receipt Date: 20230310
  Transmission Date: 20230417
  Serious: No
  Sender: FDA-Public Use
  Company Number: DE-ROCHE-3097090

PATIENT
  Age: 48 Year
  Sex: Female
  Weight: 110 kg

DRUGS (20)
  1. OCRELIZUMAB [Suspect]
     Active Substance: OCRELIZUMAB
     Indication: Relapsing multiple sclerosis
     Route: 042
     Dates: start: 20190509, end: 20190523
  2. OCRELIZUMAB [Suspect]
     Active Substance: OCRELIZUMAB
     Route: 042
     Dates: start: 20191024
  3. DIMETHINDENE MALEATE [Concomitant]
     Active Substance: DIMETHINDENE MALEATE
     Indication: Premedication
     Route: 042
     Dates: start: 20191024
  4. DIMETHINDENE MALEATE [Concomitant]
     Active Substance: DIMETHINDENE MALEATE
     Route: 042
     Dates: start: 20190509, end: 20190513
  5. DULOXETINE [Concomitant]
     Active Substance: DULOXETINE
     Indication: Depression
     Route: 048
     Dates: start: 20161215
  6. ABSTRAL [Concomitant]
     Active Substance: FENTANYL CITRATE
     Indication: Musculoskeletal chest pain
     Route: 048
     Dates: start: 20201213, end: 20201215
  7. PREDNISOLONE SODIUM SUCCINATE [Concomitant]
     Active Substance: PREDNISOLONE SODIUM SUCCINATE
     Indication: Musculoskeletal chest pain
     Route: 041
     Dates: start: 20201211, end: 20201211
  8. HYDROCHLOROTHIAZIDE [Concomitant]
     Active Substance: HYDROCHLOROTHIAZIDE
     Indication: Hypertension
     Route: 048
  9. METHYLPREDNISOLONE [Concomitant]
     Active Substance: METHYLPREDNISOLONE
     Indication: Premedication
     Route: 042
     Dates: start: 20190509, end: 20190523
  10. METHYLPREDNISOLONE [Concomitant]
     Active Substance: METHYLPREDNISOLONE
     Route: 042
     Dates: start: 20191024
  11. PREDNISOLONE [Concomitant]
     Active Substance: PREDNISOLONE
     Indication: Bronchitis
     Route: 048
     Dates: start: 20200313, end: 20200318
  12. PREDNISOLONE [Concomitant]
     Active Substance: PREDNISOLONE
     Indication: Musculoskeletal chest pain
     Route: 048
     Dates: start: 20201215
  13. OMEPRAZOLE [Concomitant]
     Active Substance: OMEPRAZOLE
     Route: 048
     Dates: start: 20131209
  14. TORSEMIDE [Concomitant]
     Active Substance: TORSEMIDE
     Indication: Oedema
     Route: 048
     Dates: start: 20220606
  15. CHOLECALCIFEROL [Concomitant]
     Active Substance: CHOLECALCIFEROL
     Indication: Vitamin D deficiency
     Route: 048
     Dates: start: 20170124
  16. FOSTER [Concomitant]
     Active Substance: BECLOMETHASONE\FORMOTEROL
     Indication: Bronchitis
     Route: 055
     Dates: start: 20200313
  17. BETAHISTINE [Concomitant]
     Active Substance: BETAHISTINE
     Indication: Dizziness
     Route: 048
     Dates: start: 20151109
  18. NOVALGIN (METAMIZOLE SODIUM) [Concomitant]
     Active Substance: METAMIZOLE SODIUM
     Indication: Pain
     Dosage: DEFINITION OF THE INTERVAL: AS REQUIRED
     Route: 048
  19. AMPHOTERICIN B [Concomitant]
     Active Substance: AMPHOTERICIN B
     Indication: Oral candidiasis
     Route: 065
     Dates: start: 20200507, end: 20200514
  20. IBUPROFEN [Concomitant]
     Active Substance: IBUPROFEN
     Indication: Pain
     Route: 048

REACTIONS (1)
  - Influenza [Recovered/Resolved]

NARRATIVE: CASE EVENT DATE: 20220510
